FAERS Safety Report 8986542 (Version 2)
Quarter: 2013Q1

REPORT INFORMATION
  Report Type: Report from Study
  Country: US (occurrence: US)
  Receive Date: 20121227
  Receipt Date: 20130110
  Transmission Date: 20140127
  Serious: Yes (Other)
  Sender: FDA-Public Use
  Company Number: US-GENZYME-CAMP-1002641

PATIENT
  Age: 27 Year
  Sex: Female
  Weight: 53.97 kg

DRUGS (2)
  1. ALEMTUZUMAB [Suspect]
     Indication: MULTIPLE SCLEROSIS
     Dosage: UNK UNK, UNK
     Route: 042
  2. RHOGAM [Concomitant]
     Indication: RHESUS INCOMPATIBILITY
     Dosage: 1 DOSE ONCE
     Route: 030
     Dates: start: 20121117, end: 20121117

REACTIONS (2)
  - Pregnancy [Unknown]
  - Abortion spontaneous [Recovered/Resolved]
